FAERS Safety Report 19947828 (Version 2)
Quarter: 2021Q4

REPORT INFORMATION
  Report Type: Spontaneous
  Country: US (occurrence: US)
  Receive Date: 20211012
  Receipt Date: 20211203
  Transmission Date: 20220304
  Serious: Yes (Other)
  Sender: FDA-Public Use
  Company Number: US-BAYER-2021A228834

PATIENT
  Age: 9 Year
  Sex: Male

DRUGS (3)
  1. KOGENATE FS [Suspect]
     Active Substance: ANTIHEMOPHILIC FACTOR, HUMAN RECOMBINANT
     Indication: Factor VIII deficiency
     Dosage: 573 IU, PRN
     Route: 042
     Dates: start: 202104
  2. KOGENATE FS [Suspect]
     Active Substance: ANTIHEMOPHILIC FACTOR, HUMAN RECOMBINANT
     Indication: Factor VIII deficiency
     Dosage: INFUSING 1290-1575 UNITS SLOW IV PUSH ONCE DAILY AS NEEDED
     Route: 042
  3. KOGENATE FS [Suspect]
     Active Substance: ANTIHEMOPHILIC FACTOR, HUMAN RECOMBINANT
     Indication: Factor VIII deficiency
     Dosage: 6 DF; USED FOR DISLOCATED ELBOW/BLEED
     Route: 042
     Dates: start: 202110

REACTIONS (2)
  - Haemarthrosis [Recovered/Resolved]
  - Joint dislocation [None]

NARRATIVE: CASE EVENT DATE: 20211002
